FAERS Safety Report 22289036 (Version 1)
Quarter: 2023Q2

REPORT INFORMATION
  Report Type: Spontaneous
  Country: AU (occurrence: None)
  Receive Date: 20230505
  Receipt Date: 20230505
  Transmission Date: 20230721
  Serious: Yes (Other)
  Sender: FDA-Public Use
  Company Number: 2023A098585

PATIENT
  Age: 37 Year
  Sex: Male

DRUGS (4)
  1. TICAGRELOR [Suspect]
     Active Substance: TICAGRELOR
     Route: 048
  2. METOPROLOL TARTRATE [Suspect]
     Active Substance: METOPROLOL TARTRATE
  3. ASPIRIN [Suspect]
     Active Substance: ASPIRIN
  4. ATORVASTATIN [Suspect]
     Active Substance: ATORVASTATIN

REACTIONS (6)
  - Acute coronary syndrome [Unknown]
  - Ischaemic stroke [Unknown]
  - Cardiac myxoma [Unknown]
  - Haemorrhage [Unknown]
  - Muscular weakness [Unknown]
  - Sinus rhythm [Unknown]
